FAERS Safety Report 4654674-0 (Version None)
Quarter: 2005Q2

REPORT INFORMATION
  Report Type: 
  Country: None (occurrence: None)
  Receive Date: 20050504
  Receipt Date: 20050504
  Transmission Date: 20051028
  Serious: Yes (Death)
  Sender: FDA-Public Use
  Company Number: None

PATIENT
  Age: 21 Year
  Sex: Female
  Weight: 95.2554 kg

DRUGS (1)
  1. WELLBUTRIN XL [Suspect]
     Indication: DEPRESSION
     Dosage: 300 MG   QAM   PARENTERAL
     Route: 051
     Dates: start: 20040101, end: 20040630

REACTIONS (3)
  - DRUG LEVEL INCREASED [None]
  - MEDICATION ERROR [None]
  - MULTIPLE DRUG OVERDOSE [None]
